FAERS Safety Report 19075213 (Version 1)
Quarter: 2021Q1

REPORT INFORMATION
  Report Type: Report from Study
  Country: GB (occurrence: GB)
  Receive Date: 20210330
  Receipt Date: 20210330
  Transmission Date: 20210420
  Serious: Yes (Hospitalization, Other)
  Sender: FDA-Public Use
  Company Number: NVSC2020GB269064

PATIENT
  Age: 53 Year
  Sex: Female

DRUGS (4)
  1. DALTEPARIN [Concomitant]
     Active Substance: DALTEPARIN
     Indication: PRODUCT USED FOR UNKNOWN INDICATION
     Dosage: UNK
     Route: 065
  2. SANDOSTATIN LAR DEPOT [Suspect]
     Active Substance: OCTREOTIDE ACETATE
     Dosage: 30 MG, Q4W (EVERY 28 DAYS)
     Route: 030
     Dates: start: 2015
  3. SANDOSTATIN LAR DEPOT [Suspect]
     Active Substance: OCTREOTIDE ACETATE
     Indication: NEUROENDOCRINE TUMOUR
     Dosage: 30 MG, Q4W
     Route: 030
     Dates: start: 2014
  4. SANDOSTATIN LAR DEPOT [Suspect]
     Active Substance: OCTREOTIDE ACETATE
     Dosage: 30 MG, Q4W (EVERY 28 DAYS)
     Route: 030
     Dates: start: 201501

REACTIONS (15)
  - Diarrhoea [Unknown]
  - Eye pain [Unknown]
  - Liver function test abnormal [Unknown]
  - Ear pain [Unknown]
  - Malaise [Unknown]
  - Abdominal pain [Unknown]
  - Pain in jaw [Unknown]
  - Facial pain [Unknown]
  - Abdominal distension [Unknown]
  - Gastrointestinal disorder [Unknown]
  - Intestinal obstruction [Recovering/Resolving]
  - Rectal haemorrhage [Unknown]
  - Toothache [Unknown]
  - Blood glucose increased [Unknown]
  - Eating disorder [Unknown]

NARRATIVE: CASE EVENT DATE: 202009
